FAERS Safety Report 15363941 (Version 2)
Quarter: 2018Q4

REPORT INFORMATION
  Report Type: Spontaneous
  Country: FR (occurrence: FR)
  Receive Date: 20180908
  Receipt Date: 20181212
  Transmission Date: 20190204
  Serious: Yes (Hospitalization)
  Sender: FDA-Public Use
  Company Number: FR-009507513-2011SP017446

PATIENT
  Age: 64 Year
  Sex: Male

DRUGS (2)
  1. HEPARIN [Suspect]
     Active Substance: HEPARIN SODIUM
     Indication: DEEP VEIN THROMBOSIS
     Route: 058
     Dates: start: 20101017, end: 20101019
  2. TEMODAL [Suspect]
     Active Substance: TEMOZOLOMIDE
     Indication: ASTROCYTOMA
     Dosage: 300 MG, QD
     Route: 048
     Dates: start: 20101008, end: 20101019

REACTIONS (4)
  - Aphasia [Recovering/Resolving]
  - Deep vein thrombosis [Recovering/Resolving]
  - Hemiplegia [Recovering/Resolving]
  - Intracranial tumour haemorrhage [Recovered/Resolved]

NARRATIVE: CASE EVENT DATE: 20101017
